FAERS Safety Report 14604767 (Version 1)
Quarter: 2018Q1

REPORT INFORMATION
  Report Type: Spontaneous
  Country: US (occurrence: US)
  Receive Date: 20180306
  Receipt Date: 20180306
  Transmission Date: 20180509
  Serious: Yes (Hospitalization)
  Sender: FDA-Public Use
  Company Number: None

PATIENT
  Age: 69 Year
  Sex: Male
  Weight: 81 kg

DRUGS (1)
  1. DIGOXIN. [Suspect]
     Active Substance: DIGOXIN
     Indication: ATRIAL FIBRILLATION
     Route: 048
     Dates: start: 20180124, end: 20180207

REACTIONS (11)
  - Abdominal pain [None]
  - Decreased appetite [None]
  - Dizziness [None]
  - Gait disturbance [None]
  - Memory impairment [None]
  - Disturbance in attention [None]
  - Bradycardia [None]
  - Weight decreased [None]
  - Photophobia [None]
  - Incorrect dose administered [None]
  - Confusional state [None]

NARRATIVE: CASE EVENT DATE: 20180207
